FAERS Safety Report 6502083-1 (Version None)
Quarter: 2009Q4

REPORT INFORMATION
  Report Type: 
  Country: None (occurrence: None)
  Receive Date: 20091214
  Receipt Date: 20091202
  Transmission Date: 20100525
  Serious: Yes (Other)
  Sender: FDA-Public Use
  Company Number: A-CH2009-30497

PATIENT
  Age: 60 Year
  Sex: Female
  Weight: 58.8 kg

DRUGS (16)
  1. TRACLEER [Suspect]
     Indication: PULMONARY ARTERIAL HYPERTENSION
     Dosage: 125 MG, BID, ORAL; 62.5 MG, BID, ORAL
     Route: 048
     Dates: start: 20031031, end: 20031128
  2. TRACLEER [Suspect]
     Indication: PULMONARY ARTERIAL HYPERTENSION
     Dosage: 125 MG, BID, ORAL; 62.5 MG, BID, ORAL
     Route: 048
     Dates: start: 20031129, end: 20091103
  3. CACIT D3  (CALCIUM CARBONATE, COLECALCIFEROL) [Concomitant]
  4. ENOXAPARIN SODIUM [Concomitant]
  5. EPOPROSTENOL SODIUM [Concomitant]
  6. AMIODARONE HCL [Concomitant]
  7. BUMETANIDE [Concomitant]
  8. SPIRONOLACTONE [Concomitant]
  9. SILDENAFIL [Concomitant]
  10. LEVOTHYROXINE SODIUM [Concomitant]
  11. FOSAVANCE (ALENDRONATE SODIUM, COLECALCIFEROL) [Concomitant]
  12. DIGOXIN [Concomitant]
  13. TRAMADOL HCL [Concomitant]
  14. TRAZODONE HCL [Concomitant]
  15. ALPRAZOLAM [Concomitant]
  16. MOVICOL (SODIUM CHLORIDE, SODIUM BICARBONATE, POTASSIUM CHLORIDE, MACR [Concomitant]

REACTIONS (3)
  - DISEASE PROGRESSION [None]
  - LUNG TRANSPLANT [None]
  - PULMONARY ARTERIAL HYPERTENSION [None]
